FAERS Safety Report 5418960-9 (Version None)
Quarter: 2007Q3

REPORT INFORMATION
  Report Type: 
  Country: None (occurrence: None)
  Receive Date: 20070817
  Receipt Date: 20070806
  Transmission Date: 20080115
  Serious: Yes (Other)
  Sender: FDA-Public Use
  Company Number: GB-PFIZER INC-2007065650

PATIENT
  Age: 18 Year
  Sex: Female

DRUGS (3)
  1. METHYLPREDNISOLONE ACETATE [Suspect]
     Indication: ANGIOCENTRIC LYMPHOMA
  2. GEMCITABINE HCL [Suspect]
     Indication: ANGIOCENTRIC LYMPHOMA
  3. CISPLATIN [Suspect]
     Indication: ANGIOCENTRIC LYMPHOMA

REACTIONS (1)
  - NEUTROPENIA [None]
